FAERS Safety Report 19953457 (Version 2)
Quarter: 2021Q4

REPORT INFORMATION
  Report Type: Report from Study
  Country: CA (occurrence: CA)
  Receive Date: 20211013
  Receipt Date: 20211025
  Transmission Date: 20220303
  Serious: Yes (Death, Other)
  Sender: FDA-Public Use
  Company Number: CA-JNJFOC-20210942736

PATIENT
  Age: 79 Year
  Sex: Female

DRUGS (1)
  1. REMICADE [Suspect]
     Active Substance: INFLIXIMAB
     Indication: Crohn^s disease
     Dosage: THERAPY END DATE: 14/OCT/2021
     Route: 042
     Dates: start: 20130131

REACTIONS (14)
  - Death [Fatal]
  - Neoplasm malignant [Unknown]
  - Hypotension [Recovering/Resolving]
  - Nausea [Recovered/Resolved]
  - Bursitis [Not Recovered/Not Resolved]
  - Weight decreased [Not Recovered/Not Resolved]
  - Asthenia [Unknown]
  - Abdominal tenderness [Not Recovered/Not Resolved]
  - Night sweats [Unknown]
  - Cold sweat [Not Recovered/Not Resolved]
  - Heart rate decreased [Unknown]
  - General physical health deterioration [Unknown]
  - Product use issue [Unknown]
  - Off label use [Unknown]

NARRATIVE: CASE EVENT DATE: 20210101
